FAERS Safety Report 13138545 (Version 2)
Quarter: 2017Q1

REPORT INFORMATION
  Report Type: Report from Study
  Country: AU (occurrence: AU)
  Receive Date: 20170123
  Receipt Date: 20170217
  Transmission Date: 20170428
  Serious: Yes (Life-Threatening, Hospitalization, Disabling, Other)
  Sender: FDA-Public Use
  Company Number: PHHO2014AU012679

PATIENT
  Age: 58 Year
  Sex: Male
  Weight: 107 kg

DRUGS (8)
  1. CERTICAN [Suspect]
     Active Substance: EVEROLIMUS
     Indication: RENAL TRANSPLANT
     Dosage: 2 MG, BID
     Route: 048
     Dates: start: 20140603, end: 20140911
  2. TACROLIMUS. [Suspect]
     Active Substance: TACROLIMUS
     Indication: RENAL TRANSPLANT
     Dosage: 2 MG, BID
     Route: 048
     Dates: start: 20140603, end: 20140911
  3. PREDNISOLONE. [Suspect]
     Active Substance: PREDNISOLONE
     Dosage: UNK
     Route: 048
  4. FUROSEMIDE. [Concomitant]
     Active Substance: FUROSEMIDE
     Indication: DIURETIC THERAPY
     Dosage: 40 MG, QD
     Route: 065
     Dates: start: 20140605, end: 20140912
  5. ROSUVASTATIN. [Concomitant]
     Active Substance: ROSUVASTATIN
     Indication: HYPERCHOLESTEROLAEMIA
     Dosage: 10 MG, DAILY
     Route: 048
     Dates: start: 20140604
  6. PREDNISOLONE. [Suspect]
     Active Substance: PREDNISOLONE
     Indication: RENAL TRANSPLANT
     Dosage: 7.5 MG, QD
     Route: 048
     Dates: start: 20140603, end: 20140911
  7. GLICLAZIDE [Concomitant]
     Active Substance: GLICLAZIDE
     Indication: DIABETES MELLITUS
     Dosage: 30 MG, DAILY
     Route: 048
     Dates: start: 20140604
  8. METOPROLOL. [Concomitant]
     Active Substance: METOPROLOL
     Indication: HYPERTENSION
     Dosage: 25 MG, BID
     Route: 048
     Dates: start: 20140603

REACTIONS (6)
  - Pyelonephritis [Recovered/Resolved with Sequelae]
  - Renal impairment [Not Recovered/Not Resolved]
  - Urinary tract infection [Recovered/Resolved]
  - Sepsis [Not Recovered/Not Resolved]
  - Sepsis [Recovered/Resolved with Sequelae]
  - Renal transplant failure [Recovered/Resolved with Sequelae]

NARRATIVE: CASE EVENT DATE: 20140908
